FAERS Safety Report 23460502 (Version 1)
Quarter: 2024Q1

REPORT INFORMATION
  Report Type: Spontaneous
  Country: CN (occurrence: CN)
  Receive Date: 20240131
  Receipt Date: 20240131
  Transmission Date: 20240410
  Serious: Yes (Other)
  Sender: FDA-Public Use
  Company Number: CN-AMGEN-CHNSP2024016503

PATIENT
  Age: 56 Year
  Sex: Male
  Weight: 70 kg

DRUGS (3)
  1. KYPROLIS [Suspect]
     Active Substance: CARFILZOMIB
     Indication: Product used for unknown indication
     Dosage: 50 MILLIGRAM
     Route: 042
     Dates: start: 20240119, end: 20240119
  2. WATER FOR INJECTION [Concomitant]
     Active Substance: WATER
     Indication: Product used for unknown indication
     Dosage: 24 MILLILITER
     Route: 042
     Dates: start: 20240119, end: 20240119
  3. DEXTROSE [Concomitant]
     Active Substance: DEXTROSE\DEXTROSE MONOHYDRATE
     Indication: Product used for unknown indication
     Dosage: 100 MILLILITER, QD
     Route: 042
     Dates: start: 20240119, end: 20240119

REACTIONS (1)
  - Myelosuppression [Recovering/Resolving]

NARRATIVE: CASE EVENT DATE: 20240120
